FAERS Safety Report 9316241 (Version 2)
Quarter: 2013Q4

REPORT INFORMATION
  Report Type: Report from Study
  Country: BR (occurrence: BR)
  Receive Date: 20130530
  Receipt Date: 20131024
  Transmission Date: 20140711
  Serious: Yes (Death, Hospitalization, Other)
  Sender: FDA-Public Use
  Company Number: PHHY2013BR054247

PATIENT
  Age: 89 Year
  Sex: Female

DRUGS (8)
  1. GALVUS MET [Suspect]
     Indication: BLOOD GLUCOSE ABNORMAL
     Dosage: 1 DF (1000 MG METF AND 50 MG VILD) TWICE A DAY
     Dates: start: 20120422
  2. EXELON PATCH [Suspect]
     Indication: DEMENTIA ALZHEIMER^S TYPE
     Dosage: 5 CM2/9MG (4.6 MG/24HOURS), QD
     Route: 062
     Dates: start: 20130506
  3. MANIVASC [Concomitant]
     Indication: HYPERTENSION
     Dosage: 0.5 DF (10 MG) BID
     Route: 048
     Dates: end: 20130506
  4. GLIMEPIRIDE [Concomitant]
     Indication: DIABETES MELLITUS
     Dosage: 2 DF (2 MG) DAILY
     Route: 048
     Dates: end: 20130506
  5. NAPRIX D [Concomitant]
     Indication: HYPERTENSION
     Dosage: 0.5 DF (5MG RAMIPRIL AND 12.5MG HCT), BID
     Route: 048
     Dates: end: 20130506
  6. PAROXETINE HYDROCHLORIDE [Concomitant]
     Indication: DEPRESSION
     Dosage: 2 DF (ONE AND HALF TABET IN THE MORNING AND THE OTHER HALF IN THE AFTERNOON)
     Route: 048
     Dates: end: 20130506
  7. SIMVASTATIN [Concomitant]
     Indication: BLOOD CHOLESTEROL INCREASED
     Dosage: 1 DF (10MG) A DAY
     Route: 048
     Dates: end: 20130506
  8. RIVOTRIL [Concomitant]
     Indication: INSOMNIA
     Dosage: 1 DF (0.5 MG) A DAY
     Route: 048
     Dates: end: 20130506

REACTIONS (8)
  - Cardio-respiratory arrest [Fatal]
  - Acute respiratory failure [Fatal]
  - Pneumonia aspiration [Fatal]
  - Dyspnoea [Fatal]
  - Anaemia [Fatal]
  - Malaise [Fatal]
  - Pallor [Fatal]
  - Anxiety [Fatal]
